FAERS Safety Report 8912393 (Version 3)
Quarter: 2012Q4

REPORT INFORMATION
  Report Type: 
  Country: JP (occurrence: JP)
  Receive Date: 20121116
  Receipt Date: 20121217
  Transmission Date: 20130627
  Serious: Yes (Life-Threatening, Other)
  Sender: FDA-Public Use
  Company Number: JP-RANBAXY-2012RR-62074

PATIENT
  Age: 66 Year
  Sex: Male

DRUGS (8)
  1. ANCARON [Suspect]
     Indication: ATRIAL FIBRILLATION
     Dosage: 200 mg/day
     Route: 065
  2. ANCARON [Suspect]
     Indication: ATRIAL FIBRILLATION
     Dosage: 100 mg/day
     Route: 065
  3. ARTIST [Suspect]
     Indication: ATRIAL FIBRILLATION
     Dosage: 2.5 mg/day
     Route: 065
  4. METILDIGOXIN [Suspect]
     Indication: PRODUCT USED FOR UNKNOWN INDICATION
     Dosage: 0.1 mg/day
     Route: 065
  5. LASIX [Suspect]
     Indication: PRODUCT USED FOR UNKNOWN INDICATION
     Dosage: 120 mg/day
     Route: 065
  6. ALDACTONE-A [Suspect]
     Indication: PRODUCT USED FOR UNKNOWN INDICATION
     Dosage: 25 mg/day
     Route: 065
  7. POTASSIUM ASPARTATE [Suspect]
     Indication: PRODUCT USED FOR UNKNOWN INDICATION
     Dosage: 900 mg/day
     Route: 065
  8. WARFARIN [Suspect]
     Indication: PRODUCT USED FOR UNKNOWN INDICATION
     Dosage: 1.5 mg/day
     Route: 065

REACTIONS (7)
  - Torsade de pointes [Recovered/Resolved]
  - Atrioventricular block [Recovered/Resolved]
  - Electrocardiogram T wave abnormal [Recovered/Resolved]
  - Electrocardiogram QT prolonged [Recovered/Resolved]
  - Drug interaction [Recovered/Resolved]
  - Atrioventricular block complete [None]
  - Syncope [None]
